FAERS Safety Report 8599388-X (Version None)
Quarter: 2012Q3

REPORT INFORMATION
  Report Type: 
  Country: None (occurrence: None)
  Receive Date: 20120816
  Receipt Date: 20120814
  Transmission Date: 20120928
  Serious: Yes (Other)
  Sender: FDA-Public Use
  Company Number: PHEH2011US04958

PATIENT
  Sex: Female
  Weight: 98.6 kg

DRUGS (9)
  1. LORAZEPAM [Concomitant]
     Indication: INSOMNIA
  2. RECLAST [Suspect]
     Indication: OSTEOPOROSIS
     Dosage: 5 MG, YEARLY
     Route: 042
     Dates: start: 20100312
  3. VIVELLE-DOT [Concomitant]
     Indication: MENOPAUSAL SYMPTOMS
     Dosage: 31.5 UG, 2 WEEKLY
  4. BUPROPION HCL [Concomitant]
     Indication: DEPRESSION
     Dosage: 100 MG, 1 AM AND 2 PM
     Route: 048
  5. METOPROLOL TARTRATE [Concomitant]
     Dosage: 25 MG, UNK
     Route: 048
  6. NEXIUM [Concomitant]
     Indication: GASTROOESOPHAGEAL REFLUX DISEASE
     Dosage: 40 MG, UNK
     Route: 048
  7. LORAZEPAM [Concomitant]
     Indication: ANXIETY
     Dosage: 1 MG, UNK
  8. LEVOTHYROXINE SODIUM [Concomitant]
     Indication: HYPOTHYROIDISM
     Dosage: 150 MG, QD
     Route: 048
  9. RECLAST [Suspect]
     Dosage: 5 MG, YEARLY
     Route: 042
     Dates: start: 20110401

REACTIONS (3)
  - TOOTH INFECTION [None]
  - BONE FORMATION DECREASED [None]
  - THYROID CANCER STAGE II [None]
